FAERS Safety Report 9085368 (Version 1)
Quarter: 2013Q1

REPORT INFORMATION
  Report Type: Report from Study
  Country: US (occurrence: US)
  Receive Date: 20130131
  Receipt Date: 20130131
  Transmission Date: 20140127
  Serious: No
  Sender: FDA-Public Use
  Company Number: US-ABBOTT-12P-163-0992412-00

PATIENT
  Age: 69 Year
  Sex: Female

DRUGS (6)
  1. HUMIRA [Suspect]
     Indication: RHEUMATOID ARTHRITIS
  2. VERAPAMIL [Concomitant]
     Indication: BLOOD PRESSURE
  3. FOLIC ACID [Concomitant]
     Indication: PRODUCT USED FOR UNKNOWN INDICATION
  4. METHOTREXATE [Concomitant]
     Indication: PRODUCT USED FOR UNKNOWN INDICATION
  5. HCTZ [Concomitant]
     Indication: PRODUCT USED FOR UNKNOWN INDICATION
  6. ANASTROZOLE [Concomitant]
     Indication: PRODUCT USED FOR UNKNOWN INDICATION

REACTIONS (3)
  - Incorrect dose administered [Recovered/Resolved]
  - Wrong technique in drug usage process [Recovered/Resolved]
  - Device malfunction [Recovered/Resolved]
